FAERS Safety Report 9444563 (Version 1)
Quarter: 2013Q3

REPORT INFORMATION
  Report Type: Spontaneous
  Country: US (occurrence: US)
  Receive Date: 20130807
  Receipt Date: 20130807
  Transmission Date: 20140515
  Serious: No
  Sender: FDA-Public Use
  Company Number: US-PFIZER INC-2013229028

PATIENT
  Age: 61 Year
  Sex: Female
  Weight: 90.7 kg

DRUGS (2)
  1. LYRICA [Suspect]
     Indication: NEURALGIA
     Dosage: 300 MG, 1X/DAY
  2. PREMARIN [Concomitant]
     Dosage: 0.625 MG, UNK

REACTIONS (1)
  - Malaise [Unknown]
